FAERS Safety Report 23504987 (Version 1)
Quarter: 2024Q1

REPORT INFORMATION
  Report Type: Spontaneous
  Country: GB (occurrence: GB)
  Receive Date: 20240209
  Receipt Date: 20240209
  Transmission Date: 20240410
  Serious: No
  Sender: FDA-Public Use
  Company Number: None

PATIENT
  Age: 55 Year
  Sex: Female
  Weight: 76 kg

DRUGS (9)
  1. GABAPENTIN [Suspect]
     Active Substance: GABAPENTIN
     Indication: Ill-defined disorder
     Dosage: UNK (1 DAILY FOR A WEEK, THEN ONE TWICE A DAY FOR A ...)
     Route: 065
     Dates: start: 20100930, end: 20230714
  2. GABAPENTIN [Suspect]
     Active Substance: GABAPENTIN
     Dosage: UNK
     Route: 065
     Dates: start: 20230714
  3. Alpha tocopherol [Concomitant]
     Indication: Ill-defined disorder
     Dosage: UNK, QD (ONE TO BE TAKEN DAILY)
     Route: 065
     Dates: start: 20081119, end: 20230714
  4. CITALOPRAM [Concomitant]
     Active Substance: CITALOPRAM HYDROBROMIDE
     Indication: Ill-defined disorder
     Dosage: UNK, QD (ONE TO BE TAKEN DAILY)
     Route: 065
     Dates: start: 20070503, end: 20230714
  5. LYMECYCLINE [Concomitant]
     Active Substance: LYMECYCLINE
     Indication: Ill-defined disorder
     Dosage: UNK, BID (ONE TO BE TAKEN TWICE A DAY)
     Route: 065
     Dates: start: 20060630, end: 20230714
  6. QVAR [Concomitant]
     Active Substance: BECLOMETHASONE DIPROPIONATE
     Indication: Ill-defined disorder
     Dosage: UNK, BID (TWO PUFFS TWICE A DAY)
     Route: 065
     Dates: start: 20040420, end: 20230714
  7. SERETIDE [Concomitant]
     Active Substance: FLUTICASONE PROPIONATE\SALMETEROL XINAFOATE
     Indication: Ill-defined disorder
     Dosage: UNK, BID (TWO PUFFS TWICE A DAY)
     Route: 065
     Dates: start: 20060921, end: 20230714
  8. SERTRALINE [Concomitant]
     Active Substance: SERTRALINE HYDROCHLORIDE
     Indication: Ill-defined disorder
     Dosage: UNK, QD 9ONE TO BE TAKEN DAILY)
     Route: 065
     Dates: start: 20080107, end: 20230714
  9. CROMOLYN SODIUM [Concomitant]
     Active Substance: CROMOLYN SODIUM
     Indication: Ill-defined disorder
     Dosage: UNK, QID (FOUR TIMES DAILY)
     Route: 065
     Dates: start: 20050422, end: 20230714

REACTIONS (3)
  - Clumsiness [Unknown]
  - Mood swings [Unknown]
  - Vision blurred [Unknown]

NARRATIVE: CASE EVENT DATE: 20230726
